FAERS Safety Report 21054652 (Version 1)
Quarter: 2022Q3

REPORT INFORMATION
  Report Type: Spontaneous
  Country: ES (occurrence: ES)
  Receive Date: 20220707
  Receipt Date: 20220707
  Transmission Date: 20221027
  Serious: Yes (Other)
  Sender: FDA-Public Use
  Company Number: ES-Gedeon Richter Plc.-2022_GR_004985

PATIENT
  Sex: Female
  Weight: 67 kg

DRUGS (4)
  1. CARIPRAZINE HYDROCHLORIDE [Suspect]
     Active Substance: CARIPRAZINE HYDROCHLORIDE
     Indication: Bipolar disorder
     Dosage: 1 DF IN THE MORNING
     Route: 048
     Dates: start: 20220301
  2. LAMOTRIGINA NORMON [Concomitant]
     Indication: Bipolar disorder
     Dosage: 25 MG, Q12H
     Route: 048
     Dates: start: 20220228
  3. RISPERIDONE [Concomitant]
     Active Substance: RISPERIDONE
     Dosage: UNK
  4. CARBAMAZEPINE [Concomitant]
     Active Substance: CARBAMAZEPINE
     Indication: Bipolar disorder
     Dosage: 200 MG, Q12H
     Route: 048
     Dates: start: 20220228

REACTIONS (4)
  - Tachyarrhythmia [Not Recovered/Not Resolved]
  - Vision blurred [Not Recovered/Not Resolved]
  - Extrapyramidal disorder [Not Recovered/Not Resolved]
  - Akathisia [Not Recovered/Not Resolved]

NARRATIVE: CASE EVENT DATE: 20220301
